FAERS Safety Report 26087777 (Version 2)
Quarter: 2025Q4

REPORT INFORMATION
  Report Type: Spontaneous
  Country: EU (occurrence: EU)
  Receive Date: 20251125
  Receipt Date: 20251201
  Transmission Date: 20260117
  Serious: Yes (Other)
  Sender: PFIZER
  Company Number: None

PATIENT
  Age: 62 Year
  Sex: Female
  Weight: 59 kg

DRUGS (4)
  1. AZITHROMYCIN [Suspect]
     Active Substance: AZITHROMYCIN
     Indication: Asthma
     Dosage: 250 MG, 1X/DAY (FOR 6 DAYS)
     Route: 048
     Dates: start: 20251013
  2. PIROXICAM [Suspect]
     Active Substance: PIROXICAM
     Indication: Asthma
     Dosage: 2 DF, 2X/DAY (2 PUFFS IN THE MORNING AND 2 PUFFS IN THE EVENING)
     Route: 055
     Dates: start: 20251009
  3. PIROXICAM [Suspect]
     Active Substance: PIROXICAM
     Dosage: 1 DF, 2X/DAY (100 UG/ 6 UG; 1X180 DOSE INHALER)
     Route: 055
     Dates: start: 20251009
  4. LEVOTHYROXINE SODIUM [Concomitant]
     Active Substance: LEVOTHYROXINE SODIUM
     Indication: Autoimmune thyroiditis
     Dosage: 1 DF (ONE ON AN EMPTY STOMACH, 100 TABLETS)

REACTIONS (3)
  - Tooth discolouration [Not Recovered/Not Resolved]
  - Toothache [Not Recovered/Not Resolved]
  - Tooth loss [Not Recovered/Not Resolved]

NARRATIVE: CASE EVENT DATE: 20251110
